FAERS Safety Report 4673401-4 (Version None)
Quarter: 2005Q2

REPORT INFORMATION
  Report Type: 
  Country: None (occurrence: None)
  Receive Date: 20050523
  Receipt Date: 20050510
  Transmission Date: 20051028
  Serious: Yes (Other)
  Sender: FDA-Public Use
  Company Number: 2005073142

PATIENT
  Age: 29 Year
  Sex: Male

DRUGS (4)
  1. GENOTROPIN [Suspect]
     Indication: OFF LABEL USE
     Dosage: 1.2 I.U. (1.2 I.U., DAILY)
     Dates: start: 20050301, end: 20050416
  2. GABAPENTIN [Concomitant]
  3. ZINC (ZINC) [Concomitant]
  4. VITAMIN B-12 [Concomitant]

REACTIONS (5)
  - BRACHIAL PLEXUS LESION [None]
  - INFARCTION [None]
  - LYMPHADENOPATHY [None]
  - LYMPHATIC DISORDER [None]
  - OVERDOSE [None]
